FAERS Safety Report 8769588 (Version 1)
Quarter: 2012Q4

REPORT INFORMATION
  Report Type: 
  Country: US (occurrence: US)
  Receive Date: 20120905
  Receipt Date: 20120905
  Transmission Date: 20130627
  Serious: Yes (Hospitalization)
  Sender: FDA-Public Use
  Company Number: US-ACTELION-A-NJ2012-70730

PATIENT
  Age: 60 Year
  Sex: Male

DRUGS (1)
  1. VELETRI [Suspect]
     Indication: PULMONARY ARTERIAL HYPERTENSION
     Dosage: 6 ng/kg, per min
     Route: 041
     Dates: start: 20120813, end: 20120829

REACTIONS (4)
  - Pulmonary veno-occlusive disease [Unknown]
  - Tachycardia [Unknown]
  - Dyspnoea [Unknown]
  - Chest pain [Unknown]
